FAERS Safety Report 16225556 (Version 2)
Quarter: 2020Q2

REPORT INFORMATION
  Report Type: Spontaneous
  Country: US (occurrence: US)
  Receive Date: 20190422
  Receipt Date: 20200618
  Transmission Date: 20200713
  Serious: No
  Sender: FDA-Public Use
  Company Number: US-009507513-1904USA007427

PATIENT
  Age: 96 Year

DRUGS (2)
  1. SINGULAIR [Suspect]
     Active Substance: MONTELUKAST SODIUM
     Dosage: 10 MG TAKEN ONCE PER DAY
     Route: 048
  2. SINGULAIR [Suspect]
     Active Substance: MONTELUKAST SODIUM
     Dosage: 10 MILLIGRAM ONCE A DAY
     Route: 048

REACTIONS (5)
  - Wrong technique in product usage process [Unknown]
  - Product packaging quantity issue [Unknown]
  - Dysphagia [Unknown]
  - Poor quality product administered [Unknown]
  - Ill-defined disorder [Unknown]

NARRATIVE: CASE EVENT DATE: 20190415
